FAERS Safety Report 5770124-5 (Version None)
Quarter: 2008Q2

REPORT INFORMATION
  Report Type: 
  Country: None (occurrence: None)
  Receive Date: 20080613
  Receipt Date: 20080421
  Transmission Date: 20081010
  Serious: No
  Sender: FDA-Public Use
  Company Number: US-ABBOTT-08P-163-0448291-00

PATIENT
  Sex: Male
  Weight: 86.26 kg

DRUGS (4)
  1. HUMIRA [Suspect]
     Indication: CROHN'S DISEASE
     Route: 058
     Dates: start: 20070901, end: 20080301
  2. HUMIRA [Suspect]
     Route: 058
     Dates: start: 20080301
  3. HUMIRA [Suspect]
     Indication: CROHN'S DISEASE
     Route: 058
     Dates: start: 20080318
  4. MESALAMINE [Concomitant]
     Indication: CROHN'S DISEASE
     Route: 048

REACTIONS (2)
  - ACCIDENTAL EXPOSURE [None]
  - CROHN'S DISEASE [None]
